FAERS Safety Report 21886810 (Version 4)
Quarter: 2025Q2

REPORT INFORMATION
  Report Type: Spontaneous
  Country: PL (occurrence: PL)
  Receive Date: 20230119
  Receipt Date: 20250610
  Transmission Date: 20250716
  Serious: Yes (Hospitalization, Disabling, Other)
  Sender: MYLAN
  Company Number: PL-Gedeon Richter Plc.-2022_GR_009894

PATIENT
  Age: 77 Year
  Sex: Female

DRUGS (9)
  1. TICAGRELOR [Interacting]
     Active Substance: TICAGRELOR
     Indication: Acute coronary syndrome
     Dosage: 180 MILLIGRAM, QD
  2. ROSUVASTATIN [Interacting]
     Active Substance: ROSUVASTATIN
     Indication: Acute coronary syndrome
     Dosage: 40 MILLIGRAM, QD
  3. BISOPROLOL [Concomitant]
     Active Substance: BISOPROLOL
     Indication: Acute coronary syndrome
     Dosage: 10 MILLIGRAM, QD
  4. ASPIRIN [Concomitant]
     Active Substance: ASPIRIN
     Indication: Acute coronary syndrome
     Dosage: 75 MILLIGRAM, QD
  5. NPH INSULIN [Concomitant]
     Active Substance: INSULIN BEEF
     Dosage: UNK UNK, QD (AT NIGHT)
  6. METFORMIN [Concomitant]
     Active Substance: METFORMIN HYDROCHLORIDE
     Indication: Type 2 diabetes mellitus
  7. PANTOPRAZOLE [Concomitant]
     Active Substance: PANTOPRAZOLE
     Indication: Acute coronary syndrome
     Dosage: 20 MILLIGRAM, QD
  8. RAMIPRIL [Concomitant]
     Active Substance: RAMIPRIL
     Indication: Acute coronary syndrome
     Dosage: 2.5 MILLIGRAM, QD
  9. INSULIN ASPART [Concomitant]
     Active Substance: INSULIN ASPART
     Dosage: UNK, TID 3 TIMES A DAY WITH MEALS

REACTIONS (13)
  - Blood urea increased [Unknown]
  - Peripheral swelling [Recovered/Resolved]
  - Blood creatine phosphokinase increased [Recovered/Resolved]
  - Dysuria [Recovered/Resolved]
  - Gait disturbance [Recovered/Resolved]
  - Chromaturia [Recovered/Resolved]
  - Asthenia [Recovered/Resolved]
  - Alanine aminotransferase increased [Recovered/Resolved]
  - Aspartate aminotransferase increased [Recovered/Resolved]
  - Acute kidney injury [Recovered/Resolved]
  - Rhabdomyolysis [Unknown]
  - Blood creatinine increased [Recovered/Resolved]
  - Drug interaction [Recovered/Resolved]
